FAERS Safety Report 10611269 (Version 1)
Quarter: 2014Q4

REPORT INFORMATION
  Report Type: Spontaneous
  Country: US (occurrence: US)
  Receive Date: 20141126
  Receipt Date: 20141126
  Transmission Date: 20150529
  Serious: No
  Sender: FDA-Public Use
  Company Number: US-MALLINCKRODT-T201403534

PATIENT

DRUGS (1)
  1. ULTRA-TECHNEKOW DTE [Suspect]
     Active Substance: MOLYBDENUM MO-99\TECHNETIUM TC-99M
     Indication: IMAGING PROCEDURE
     Dosage: UNK
     Route: 013

REACTIONS (1)
  - Incorrect route of drug administration [Unknown]
